FAERS Safety Report 7271609-5 (Version None)
Quarter: 2011Q1

REPORT INFORMATION
  Report Type: 
  Country: None (occurrence: None)
  Receive Date: 20110203
  Receipt Date: 20110125
  Transmission Date: 20110831
  Serious: Yes (Other)
  Sender: FDA-Public Use
  Company Number: US-RB-019808-11

PATIENT
  Age: 83 Year
  Sex: Male

DRUGS (1)
  1. MUCINEX MAX [Suspect]
     Route: 048

REACTIONS (1)
  - HALLUCINATION [None]
